FAERS Safety Report 26028032 (Version 1)
Quarter: 2025Q4

REPORT INFORMATION
  Report Type: Spontaneous
  Country: US (occurrence: None)
  Receive Date: 20251111
  Receipt Date: 20251111
  Transmission Date: 20260118
  Serious: No
  Sender: FDA-CTU
  Company Number: None

PATIENT
  Age: 9 Year
  Sex: Male
  Weight: 44 kg

DRUGS (2)
  1. ALPHANATE [Suspect]
     Active Substance: HUMAN COAGULATION FACTOR VIII/VON WILLEBRAND FACTOR COMPLEX
     Indication: Factor VIII deficiency
     Dosage: 3000 UNK - UNKNOWN EVERY OTHER DAY INTRAVENOUS
     Route: 042
     Dates: start: 20250912, end: 20250930
  2. ALPHANATE [Suspect]
     Active Substance: HUMAN COAGULATION FACTOR VIII/VON WILLEBRAND FACTOR COMPLEX
     Indication: Factor VIII deficiency
     Dosage: 1920 UNK - UNKNOWN EVRY OTHER DAY INTRAVENOUS?
     Route: 042
     Dates: start: 20250912, end: 20250930

REACTIONS (2)
  - Infusion related reaction [None]
  - Peripheral swelling [None]

NARRATIVE: CASE EVENT DATE: 20250930
